FAERS Safety Report 18277560 (Version 1)
Quarter: 2020Q3

REPORT INFORMATION
  Report Type: Spontaneous
  Country: US (occurrence: US)
  Receive Date: 20200916
  Receipt Date: 20200916
  Transmission Date: 20201103
  Serious: Yes (Hospitalization)
  Sender: FDA-Public Use
  Company Number: None

PATIENT
  Age: 72 Year
  Sex: Female

DRUGS (21)
  1. AMOX/K CLAV [Concomitant]
     Active Substance: AMOXICILLIN\CLAVULANATE POTASSIUM
  2. DOXYCYCL HYC [Concomitant]
  3. PROCHLORPER [Concomitant]
  4. BUPROPN HCL [Concomitant]
     Active Substance: BUPROPION HYDROCHLORIDE
  5. TOBRA/DEXAME [Concomitant]
  6. LEVOFLOXACIN. [Concomitant]
     Active Substance: LEVOFLOXACIN
  7. LOSARTAN POT [Concomitant]
     Active Substance: LOSARTAN POTASSIUM
  8. VALACYCLOVIR [Concomitant]
     Active Substance: VALACYCLOVIR HYDROCHLORIDE
  9. VENLAFAXINE [Concomitant]
     Active Substance: VENLAFAXINE HYDROCHLORIDE
  10. RYDAPT [Suspect]
     Active Substance: MIDOSTAURIN
     Indication: SYSTEMIC MASTOCYTOSIS
     Route: 048
     Dates: start: 20191109
  11. FLUCONAZOLE. [Concomitant]
     Active Substance: FLUCONAZOLE
  12. CIPROFLOXACN [Concomitant]
     Active Substance: CIPROFLOXACIN
  13. ERYTHROMYCIN. [Concomitant]
     Active Substance: ERYTHROMYCIN
  14. FLUOROURACIL. [Concomitant]
     Active Substance: FLUOROURACIL
  15. LEVOTHYROXIN [Concomitant]
     Active Substance: LEVOTHYROXINE
  16. OXYBUTYNIN. [Concomitant]
     Active Substance: OXYBUTYNIN CHLORIDE
  17. MUPIROCIN. [Concomitant]
     Active Substance: MUPIROCIN
  18. DEEP SEA SPR [Concomitant]
  19. HYDROCHLOROT [Concomitant]
     Active Substance: HYDROCHLOROTHIAZIDE
  20. NEO/POLY/DEX [Concomitant]
     Active Substance: DEXAMETHASONE\NEOMYCIN\POLYMYXIN B SULFATE
  21. NYSTATIN CRE [Concomitant]

REACTIONS (2)
  - Therapy interrupted [None]
  - Dacryostenosis acquired [None]

NARRATIVE: CASE EVENT DATE: 20200908
